FAERS Safety Report 18233914 (Version 2)
Quarter: 2020Q3

REPORT INFORMATION
  Report Type: Spontaneous
  Country: GB (occurrence: GB)
  Receive Date: 20200904
  Receipt Date: 20200929
  Transmission Date: 20201103
  Serious: Yes (Hospitalization, Other)
  Sender: FDA-Public Use
  Company Number: GB-PFIZER INC-2020340090

PATIENT
  Age: 73 Year
  Sex: Female

DRUGS (3)
  1. TARGOCID [Suspect]
     Active Substance: TEICOPLANIN
     Indication: PROPHYLAXIS
  2. TARGOCID [Suspect]
     Active Substance: TEICOPLANIN
     Indication: ANTIBIOTIC PROPHYLAXIS
     Dosage: 600 MG
     Route: 042
     Dates: start: 20200819
  3. BACTERIOSTATIC SODIUM CHLORIDE [Suspect]
     Active Substance: SODIUM CHLORIDE
     Route: 040

REACTIONS (5)
  - Flushing [Recovered/Resolved]
  - Vomiting [Recovering/Resolving]
  - Nausea [Recovered/Resolved]
  - Anaphylactic reaction [Recovered/Resolved]
  - Intentional product misuse [Unknown]

NARRATIVE: CASE EVENT DATE: 20200819
